FAERS Safety Report 7847237 (Version 2)
Quarter: 2014Q2

REPORT INFORMATION
  Report Type: Spontaneous
  Country: US (occurrence: US)
  Receive Date: 20110309
  Receipt Date: 20140512
  Transmission Date: 20141212
  Serious: Yes (Hospitalization, Disabling)
  Sender: FDA-Public Use
  Company Number: US-US-EMD SERONO, INC.-7045331

PATIENT
  Age: 54 Year
  Sex: Female
  Weight: 113 kg

DRUGS (4)
  1. REBIF [Suspect]
     Indication: MULTIPLE SCLEROSIS
     Route: 058
     Dates: start: 20060821
  2. NEURONTIN [Concomitant]
     Indication: PAIN
  3. BACLOFEN [Concomitant]
     Indication: MUSCLE SPASMS
  4. ADVIL [Concomitant]
     Indication: PAIN
     Dates: end: 2010

REACTIONS (4)
  - Thrombosis [Recovered/Resolved]
  - Intestinal obstruction [Recovered/Resolved]
  - Cystitis [Recovered/Resolved]
  - Bedridden [Not Recovered/Not Resolved]
